FAERS Safety Report 8036529-7 (Version None)
Quarter: 2012Q1

REPORT INFORMATION
  Report Type: 
  Country: None (occurrence: None)
  Receive Date: 20120109
  Receipt Date: 20111230
  Transmission Date: 20120608
  Serious: Yes (Hospitalization)
  Sender: FDA-Public Use
  Company Number: 2011SP054338

PATIENT
  Age: 54 Year
  Sex: Male
  Weight: 106 kg

DRUGS (8)
  1. LEVOTHYROXINE SODIUM [Concomitant]
  2. PEG-INTRON [Suspect]
     Indication: HEPATITIS C
     Dosage: 150 MCG;QW;SC
     Route: 058
     Dates: start: 20110419
  3. VICTRELIS [Suspect]
     Indication: HEPATITIS C
     Dosage: 800 MG;TID;PO
     Route: 048
  4. REBETOL [Suspect]
     Indication: HEPATITIS C
     Dosage: 700 MG;BID;PO, 400 MG;BD;PO
     Route: 048
     Dates: start: 20110419
  5. REBETOL [Suspect]
     Indication: HEPATITIS C
     Dosage: 700 MG;BID;PO, 400 MG;BD;PO
     Route: 048
     Dates: start: 20111010
  6. LANSOPRAZOLE [Concomitant]
  7. IRON [Concomitant]
  8. SIMVASTATIN [Concomitant]

REACTIONS (17)
  - BLOOD SODIUM DECREASED [None]
  - MONOCYTE COUNT INCREASED [None]
  - ALANINE AMINOTRANSFERASE INCREASED [None]
  - DIZZINESS [None]
  - DECREASED APPETITE [None]
  - EOSINOPHIL COUNT INCREASED [None]
  - LYMPHOCYTE COUNT INCREASED [None]
  - NEUTROPHIL COUNT DECREASED [None]
  - FIBROSIS [None]
  - BLOOD BILIRUBIN INCREASED [None]
  - BLOOD URIC ACID DECREASED [None]
  - ANAEMIA [None]
  - SKIN DISORDER [None]
  - BLOOD THYROID STIMULATING HORMONE INCREASED [None]
  - ASTHENIA [None]
  - PLATELET COUNT DECREASED [None]
  - WHITE BLOOD CELL COUNT DECREASED [None]
